FAERS Safety Report 18632715 (Version 3)
Quarter: 2023Q1

REPORT INFORMATION
  Report Type: Report from Study
  Country: CO (occurrence: CO)
  Receive Date: 20201218
  Receipt Date: 20230209
  Transmission Date: 20230417
  Serious: Yes (Hospitalization, Disabling, Other)
  Sender: FDA-Public Use
  Company Number: CO-ABBVIE-20K-036-3296521-00

PATIENT
  Sex: Male
  Weight: 90 kg

DRUGS (2)
  1. HUMIRA [Suspect]
     Active Substance: ADALIMUMAB
     Indication: Hidradenitis
     Route: 058
     Dates: start: 20190207, end: 20230114
  2. HUMIRA [Suspect]
     Active Substance: ADALIMUMAB
     Route: 058

REACTIONS (17)
  - Cough [Recovered/Resolved]
  - Hidradenitis [Not Recovered/Not Resolved]
  - Fistula [Unknown]
  - Rhinorrhoea [Recovered/Resolved]
  - Skin injury [Recovering/Resolving]
  - Groin abscess [Recovered/Resolved]
  - Feeling hot [Not Recovered/Not Resolved]
  - Perineal abscess [Not Recovered/Not Resolved]
  - Inflammation [Not Recovered/Not Resolved]
  - Groin abscess [Recovering/Resolving]
  - Abscess [Recovered/Resolved]
  - Abscess limb [Not Recovered/Not Resolved]
  - Malaise [Not Recovered/Not Resolved]
  - Impaired healing [Recovering/Resolving]
  - Productive cough [Recovered/Resolved]
  - Hidradenitis [Recovering/Resolving]
  - Discomfort [Unknown]

NARRATIVE: CASE EVENT DATE: 20200101
